FAERS Safety Report 24928905 (Version 1)
Quarter: 2025Q1

REPORT INFORMATION
  Report Type: Spontaneous
  Country: US (occurrence: US)
  Receive Date: 20250205
  Receipt Date: 20250205
  Transmission Date: 20250409
  Serious: No
  Sender: pharmaAND
  Company Number: US-PHARMAAND GMBH-2024PHR00360

PATIENT
  Age: 73 Year
  Sex: Female

DRUGS (6)
  1. RUBRACA [Suspect]
     Active Substance: RUCAPARIB CAMSYLATE
     Indication: Ovarian cancer
     Dosage: 1200 MILLIGRAM EVERY 1 DAY(S) 600 MG BID
     Route: 048
     Dates: start: 2021
  2. MYSOLINE [Concomitant]
     Active Substance: PRIMIDONE
     Indication: Seizure
  3. DILANTIN [Concomitant]
     Active Substance: PHENYTOIN
     Indication: Seizure
  4. HYZAAR [Concomitant]
     Active Substance: HYDROCHLOROTHIAZIDE\LOSARTAN POTASSIUM
     Indication: Hypertension
  5. LOPRESSOR [Concomitant]
     Active Substance: METOPROLOL TARTRATE
     Indication: Hypertension
  6. NIFEDIPINE [Concomitant]
     Active Substance: NIFEDIPINE
     Indication: Hypertension

REACTIONS (1)
  - Alopecia [Unknown]

NARRATIVE: CASE EVENT DATE: 20240301
